APPROVED DRUG PRODUCT: KAON CL
Active Ingredient: POTASSIUM CHLORIDE
Strength: 6.7MEQ
Dosage Form/Route: TABLET, EXTENDED RELEASE;ORAL
Application: N017046 | Product #001
Applicant: SAVAGE LABORATORIES INC DIV ALTANA INC
Approved: Approved Prior to Jan 1, 1982 | RLD: No | RS: No | Type: DISCN